FAERS Safety Report 6652982-5 (Version None)
Quarter: 2010Q1

REPORT INFORMATION
  Report Type: 
  Country: None (occurrence: None)
  Receive Date: 20100326
  Receipt Date: 20100315
  Transmission Date: 20100710
  Serious: Yes (Hospitalization, Other)
  Sender: FDA-Public Use
  Company Number: PHHY2010AU15703

PATIENT
  Sex: Male

DRUGS (2)
  1. CLOZARIL [Suspect]
     Dosage: 375 MG, UNK
     Route: 048
     Dates: start: 20050718
  2. CLOZARIL [Suspect]
     Dosage: 50 TABLETS (5000 MG)/70 TABLETS (7000MG)
     Route: 048

REACTIONS (7)
  - ALANINE AMINOTRANSFERASE INCREASED [None]
  - ARTHRALGIA [None]
  - BLOOD CREATININE INCREASED [None]
  - FALL [None]
  - MENTAL DISORDER [None]
  - MUSCULAR WEAKNESS [None]
  - OVERDOSE [None]
